FAERS Safety Report 17715818 (Version 1)
Quarter: 2020Q2

REPORT INFORMATION
  Report Type: Report from Study
  Country: None (occurrence: US)
  Receive Date: 20200428
  Receipt Date: 20200428
  Transmission Date: 20200714
  Serious: Yes (Other)
  Sender: FDA-Public Use
  Company Number: US-ABBVIE-20K-163-3377590-00

PATIENT
  Sex: Male

DRUGS (1)
  1. DUOPA [Suspect]
     Active Substance: CARBIDOPA\LEVODOPA
     Indication: PARKINSON^S DISEASE
     Dosage: 4.4 RATE 3.2ML EXTRA DOSE .8 EVERY HR AS NEEDED
     Route: 050
     Dates: start: 20161214

REACTIONS (6)
  - Cervical spinal cord paralysis [Unknown]
  - Therapeutic product effect decreased [Unknown]
  - Post procedural complication [Unknown]
  - Device issue [Unknown]
  - Spinal fusion surgery [Unknown]
  - Pseudomeningocele [Unknown]
